FAERS Safety Report 22623150 (Version 1)
Quarter: 2023Q2

REPORT INFORMATION
  Report Type: Spontaneous
  Country: US (occurrence: US)
  Receive Date: 20230621
  Receipt Date: 20230621
  Transmission Date: 20230721
  Serious: Yes (Other)
  Sender: FDA-Public Use
  Company Number: US-drreddys-SPO/USA/23/0167203

PATIENT
  Age: 50 Year
  Sex: Female

DRUGS (3)
  1. CLONIDINE [Suspect]
     Active Substance: CLONIDINE
     Indication: Abdominal pain
     Dosage: SYNCHROMED-II PUMP(HIGHER CONCENTRATION )
     Route: 029
  2. FENTANYL CITRATE [Suspect]
     Active Substance: FENTANYL CITRATE
     Indication: Abdominal pain
     Dosage: SYNCHROMED-II PUMP(HIGHER CONCENTRATION )
     Route: 029
  3. BUPIVACAINE [Suspect]
     Active Substance: BUPIVACAINE
     Indication: Abdominal pain
     Dosage: SYNCHROMED-II PUMP(HIGHER CONCENTRATION )
     Route: 029

REACTIONS (4)
  - Somnolence [Recovering/Resolving]
  - Device programming error [Recovered/Resolved]
  - Accidental overdose [Recovered/Resolved]
  - Product use in unapproved indication [Unknown]
